FAERS Safety Report 4397726-5 (Version None)
Quarter: 2004Q3

REPORT INFORMATION
  Report Type: 
  Country: None (occurrence: None)
  Receive Date: 20040713
  Receipt Date: 20040702
  Transmission Date: 20050211
  Serious: Yes (Hospitalization, Other)
  Sender: FDA-Public Use
  Company Number: 2004-05-0706

PATIENT
  Age: 45 Year
  Sex: Female
  Weight: 70.3075 kg

DRUGS (10)
  1. PEG-INTRON [Suspect]
     Indication: HEPATITIS
     Dosage: 120 MCG SUBCUTANEOUS
     Route: 058
     Dates: start: 20020531, end: 20020618
  2. PEG-INTRON [Suspect]
     Indication: HEPATITIS
     Dosage: 120 MCG SUBCUTANEOUS
     Route: 058
     Dates: start: 20021008, end: 20021217
  3. PEG-INTRON [Suspect]
     Indication: HEPATITIS
     Dosage: 120 MCG SUBCUTANEOUS
     Route: 058
     Dates: start: 20030201, end: 20030821
  4. REBETOL [Suspect]
     Indication: HEPATITIS
     Dosage: 600 MG QD ORAL
     Route: 048
     Dates: start: 20020531, end: 20020618
  5. REBETOL [Suspect]
     Indication: HEPATITIS
     Dosage: 600 MG QD ORAL
     Route: 048
     Dates: start: 20021008, end: 20021217
  6. REBETOL [Suspect]
     Indication: HEPATITIS
     Dosage: 600 MG QD ORAL
     Route: 048
     Dates: start: 20030201, end: 20030605
  7. REBETOL [Suspect]
     Indication: HEPATITIS
     Dosage: 600 MG QD ORAL
     Route: 048
     Dates: end: 20030821
  8. HUMULIN [Concomitant]
  9. ATENOLOL [Concomitant]
  10. FLOVENT [Concomitant]

REACTIONS (10)
  - ARRHYTHMIA [None]
  - CARDIOMEGALY [None]
  - CELLULITIS [None]
  - CHEST PAIN [None]
  - COUGH [None]
  - DYSPNOEA [None]
  - EAR INFECTION [None]
  - SELF-MEDICATION [None]
  - SWELLING [None]
  - TREATMENT NONCOMPLIANCE [None]
